FAERS Safety Report 12975332 (Version 3)
Quarter: 2017Q2

REPORT INFORMATION
  Report Type: Spontaneous
  Country: JP (occurrence: JP)
  Receive Date: 20161125
  Receipt Date: 20170501
  Transmission Date: 20170830
  Serious: Yes (Death, Hospitalization, Other)
  Sender: FDA-Public Use
  Company Number: JP-009507513-1611JPN010340

PATIENT
  Age: 78 Year
  Sex: Male

DRUGS (2)
  1. PREDNISOLONE. [Suspect]
     Active Substance: PREDNISOLONE
     Indication: IRITIS
     Dosage: 40 MG, TAPERING DOSE
     Route: 048
     Dates: start: 2016
  2. DEXAMETHASONE. [Suspect]
     Active Substance: DEXAMETHASONE
     Indication: IRITIS
     Dosage: UNK
     Route: 057
     Dates: start: 2016

REACTIONS (3)
  - Off label use [Unknown]
  - Acute respiratory distress syndrome [Fatal]
  - Pneumocystis jirovecii pneumonia [Fatal]

NARRATIVE: CASE EVENT DATE: 2016
